FAERS Safety Report 7328635-7 (Version None)
Quarter: 2011Q1

REPORT INFORMATION
  Report Type: 
  Country: None (occurrence: None)
  Receive Date: 20110224
  Receipt Date: 20110224
  Transmission Date: 20110831
  Serious: No
  Sender: FDA-Public Use
  Company Number: None

PATIENT
  Sex: Male
  Weight: 120.2032 kg

DRUGS (1)
  1. SUBOXONE [Suspect]
     Indication: DRUG DEPENDENCE
     Dosage: 1 FILM 2 TIMES PER DAY SL
     Route: 060
     Dates: start: 20110201, end: 20110222

REACTIONS (3)
  - TONGUE ULCERATION [None]
  - GLOSSITIS [None]
  - PRODUCT FORMULATION ISSUE [None]
